FAERS Safety Report 7379051-3 (Version None)
Quarter: 2011Q1

REPORT INFORMATION
  Report Type: 
  Country: None (occurrence: None)
  Receive Date: 20110328
  Receipt Date: 20110321
  Transmission Date: 20110831
  Serious: Yes (Disabling, Other)
  Sender: FDA-Public Use
  Company Number: GB-CEPHALON-2010004756

PATIENT
  Sex: Male

DRUGS (4)
  1. RITUXIMAB [Suspect]
     Indication: MANTLE CELL LYMPHOMA
     Route: 042
     Dates: end: 20100707
  2. TREANDA [Suspect]
     Route: 041
     Dates: end: 20100707
  3. TREANDA [Suspect]
     Indication: MANTLE CELL LYMPHOMA
     Route: 041
  4. TREANDA [Suspect]
     Route: 041

REACTIONS (1)
  - PANCYTOPENIA [None]
